FAERS Safety Report 14489772 (Version 2)
Quarter: 2018Q1

REPORT INFORMATION
  Report Type: Report from Study
  Country: None (occurrence: TW)
  Receive Date: 20180205
  Receipt Date: 20180226
  Transmission Date: 20180509
  Serious: Yes (Death)
  Sender: FDA-Public Use
  Company Number: TW-ABBVIE-18K-153-2246068-00

PATIENT
  Age: 29 Year
  Sex: Male
  Weight: 52.6 kg

DRUGS (6)
  1. HUMIRA [Suspect]
     Active Substance: ADALIMUMAB
     Indication: CROHN^S DISEASE
     Route: 058
     Dates: start: 20180115, end: 20180115
  2. IMURAN [Concomitant]
     Active Substance: AZATHIOPRINE
     Indication: CROHN^S DISEASE
     Route: 048
     Dates: start: 20140905, end: 20180129
  3. HUMIRA [Suspect]
     Active Substance: ADALIMUMAB
     Route: 058
     Dates: start: 20180116, end: 20180116
  4. PENTASA [Concomitant]
     Active Substance: MESALAMINE
     Indication: CROHN^S DISEASE
     Dosage: 2 PACK
     Route: 048
     Dates: start: 20170322, end: 20180129
  5. HUMIRA [Suspect]
     Active Substance: ADALIMUMAB
     Route: 058
     Dates: start: 20180126, end: 20180126
  6. PREDNISOLONE. [Concomitant]
     Active Substance: PREDNISOLONE
     Indication: CROHN^S DISEASE
     Route: 048
     Dates: start: 20141029, end: 20180129

REACTIONS (2)
  - Cyanosis central [Fatal]
  - Death [Fatal]

NARRATIVE: CASE EVENT DATE: 20180129
